FAERS Safety Report 22612706 (Version 2)
Quarter: 2023Q2

REPORT INFORMATION
  Report Type: Spontaneous
  Country: RO (occurrence: RO)
  Receive Date: 20230617
  Receipt Date: 20230627
  Transmission Date: 20230721
  Serious: Yes (Disabling, Other)
  Sender: FDA-Public Use
  Company Number: RO-002147023-NVSC2023RO123804

PATIENT
  Age: 58 Year
  Sex: Female

DRUGS (17)
  1. SIMBRINZA [Suspect]
     Active Substance: BRIMONIDINE TARTRATE\BRINZOLAMIDE
     Indication: Glaucoma
     Dosage: UNK (IN THE MORNING, IN THE EVENING)
     Route: 047
     Dates: start: 2018
  2. SIMBRINZA [Suspect]
     Active Substance: BRIMONIDINE TARTRATE\BRINZOLAMIDE
     Dosage: UNK
     Route: 047
     Dates: start: 202211, end: 202305
  3. MAXIDEX [Suspect]
     Active Substance: DEXAMETHASONE
     Indication: Keratitis
     Dosage: UNK (4 TIMES/DAY, 6 TIMES/DAY, 4 TIMES/DAY, 2 TIMES/DAY)
     Route: 047
     Dates: start: 202211, end: 202305
  4. ATACAND [Concomitant]
     Active Substance: CANDESARTAN CILEXETIL
     Indication: Hypertension
     Dosage: 8 MG, BID (2/DAY)
     Route: 065
     Dates: start: 2018, end: 202306
  5. ATACAND [Concomitant]
     Active Substance: CANDESARTAN CILEXETIL
     Dosage: 8 MG, TID (3/DAY)
     Route: 065
     Dates: start: 202306
  6. FUROSEMIDE [Concomitant]
     Active Substance: FUROSEMIDE
     Indication: Hypertension
     Dosage: UNK (FREQUENCY: OCCASIONALLY)
     Route: 065
  7. BISOPROLOL FUMARATE [Concomitant]
     Active Substance: BISOPROLOL FUMARATE
     Indication: Pulse abnormal
     Dosage: 2.5 MG, BID (2/DAY)
     Route: 065
     Dates: start: 2018
  8. METOPROLOL [Concomitant]
     Active Substance: METOPROLOL
     Indication: Pulse abnormal
     Dosage: 25 MG, PRN (WHEN NEEDED)
     Route: 065
  9. ACETAZOLAMIDE [Concomitant]
     Active Substance: ACETAZOLAMIDE
     Indication: Intraocular pressure test abnormal
     Dosage: UNK UNK, QD (2-3 PER DAY)
     Route: 065
     Dates: start: 2018
  10. IMOVANE [Concomitant]
     Active Substance: ZOPICLONE
     Indication: Sleep disorder
     Dosage: 1 DOSAGE FORM, QD ( (1 IN THE EVENING)
     Route: 065
     Dates: start: 2022
  11. OMERAN [Concomitant]
     Indication: Abdominal discomfort
     Dosage: UNK (FREQUENCY: OCASIONALLY)
     Route: 065
  12. EUTHYROX [Concomitant]
     Active Substance: LEVOTHYROXINE SODIUM
     Indication: Hypothyroidism
     Dosage: UNK
     Route: 065
     Dates: start: 202101
  13. PASSIFLORA [Concomitant]
     Indication: Stress
     Dosage: UNK (1 IN THE EVENING)
     Route: 065
  14. TIMOLOL [Concomitant]
     Active Substance: TIMOLOL
     Indication: Intraocular pressure test abnormal
     Dosage: UNK (OCCASIONALLY)
     Route: 047
     Dates: start: 2018
  15. LATANOPROST [Concomitant]
     Active Substance: LATANOPROST
     Indication: Intraocular pressure test abnormal
     Dosage: UNK
     Route: 047
  16. ESSENTIALE [Concomitant]
     Indication: Liver disorder
     Dosage: UNK, QD (1/DAY IN THE EVENING)
     Route: 065
     Dates: start: 2018
  17. MAGNESIUM ASPARTATE\POTASSIUM ASPARTATE [Concomitant]
     Active Substance: MAGNESIUM ASPARTATE\POTASSIUM ASPARTATE
     Indication: Intraocular pressure test abnormal
     Dosage: UNK, QD (2-3/DAY)
     Route: 065
     Dates: start: 2018

REACTIONS (17)
  - Somnolence [Not Recovered/Not Resolved]
  - Heart rate increased [Recovered/Resolved]
  - Blood pressure increased [Recovered/Resolved]
  - Syncope [Not Recovered/Not Resolved]
  - Vision blurred [Not Recovered/Not Resolved]
  - Hypersensitivity [Not Recovered/Not Resolved]
  - Therapeutic product effect decreased [Not Recovered/Not Resolved]
  - Tension [Recovered/Resolved]
  - Insomnia [Recovered/Resolved]
  - Chest pain [Not Recovered/Not Resolved]
  - Suffocation feeling [Unknown]
  - Heart rate irregular [Unknown]
  - Liver disorder [Not Recovered/Not Resolved]
  - Hepatic pain [Unknown]
  - Burning sensation [Unknown]
  - Headache [Recovered/Resolved]
  - Extra dose administered [Unknown]

NARRATIVE: CASE EVENT DATE: 20220501
